FAERS Safety Report 4429393-6 (Version None)
Quarter: 2004Q3

REPORT INFORMATION
  Report Type: 
  Country: None (occurrence: None)
  Receive Date: 20040816
  Receipt Date: 20040805
  Transmission Date: 20050211
  Serious: Yes (Life-Threatening, Hospitalization)
  Sender: FDA-Public Use
  Company Number: 2004-08-0314

PATIENT
  Age: 44 Year
  Sex: Male

DRUGS (3)
  1. PEG-INTRON [Suspect]
     Indication: HEPATITIS C
     Dosage: 100 MCG QWK SUBCUTANEOUS
     Route: 058
     Dates: start: 20040608
  2. RIBAVIRIN [Suspect]
     Indication: HEPATITIS C
     Dosage: 1000 MG QD ORAL
     Route: 048
     Dates: start: 20040806
  3. ANTIHEMOPHILIC FACTOR (HUMAN) [Concomitant]

REACTIONS (8)
  - CONVULSION [None]
  - COUGH [None]
  - FALL [None]
  - LOSS OF CONSCIOUSNESS [None]
  - NASOPHARYNGITIS [None]
  - PETECHIAE [None]
  - SUBDURAL HAEMATOMA [None]
  - THORACIC VERTEBRAL FRACTURE [None]
